FAERS Safety Report 6583213-2 (Version None)
Quarter: 2010Q1

REPORT INFORMATION
  Report Type: 
  Country: None (occurrence: None)
  Receive Date: 20100216
  Receipt Date: 20100208
  Transmission Date: 20100710
  Serious: Yes (Hospitalization)
  Sender: FDA-Public Use
  Company Number: GB-ROCHE-685297

PATIENT
  Sex: Female

DRUGS (2)
  1. CAPECITABINE [Suspect]
     Dosage: GIVEN FROM DAY 1 TO 14; CYCLE REPEATED EVERY 3 WEEKS
     Route: 048
  2. NAVELBINE [Suspect]
     Dosage: ON DAYS 1, 8 AND 15; CYCLE REPEATED EVERY 3 WEEKS
     Route: 048

REACTIONS (2)
  - DIHYDROPYRIMIDINE DEHYDROGENASE DEFICIENCY [None]
  - FEBRILE NEUTROPENIA [None]
